FAERS Safety Report 11201180 (Version 1)
Quarter: 2015Q2

REPORT INFORMATION
  Report Type: Spontaneous
  Country: KR (occurrence: KR)
  Receive Date: 20150619
  Receipt Date: 20150619
  Transmission Date: 20150821
  Serious: Yes (Hospitalization)
  Sender: FDA-Public Use
  Company Number: KR-AMGEN-KORCT2015059706

PATIENT
  Age: 45 Year
  Sex: Female

DRUGS (87)
  1. DEXRAZOXANE. [Concomitant]
     Active Substance: DEXRAZOXANE
     Dosage: 890 MG, UNK
     Route: 042
     Dates: start: 20150326, end: 20150326
  2. DEXAMETHASONE. [Concomitant]
     Active Substance: DEXAMETHASONE
     Dosage: 10 MG, UNK
     Route: 042
     Dates: start: 20150305, end: 20150305
  3. DEXAMETHASONE. [Concomitant]
     Active Substance: DEXAMETHASONE
     Dosage: 10 MG, UNK
     Route: 042
     Dates: start: 20150326, end: 20150326
  4. DEXAMETHASONE. [Concomitant]
     Active Substance: DEXAMETHASONE
     Dosage: 3 MG, UNK
     Route: 048
     Dates: start: 20150508, end: 20150509
  5. APREPITANT. [Concomitant]
     Active Substance: APREPITANT
     Dosage: 125 MG, UNK
     Route: 048
     Dates: start: 20150416, end: 20150416
  6. APREPITANT. [Concomitant]
     Active Substance: APREPITANT
     Dosage: 80 MG, UNK
     Route: 048
     Dates: start: 20150508, end: 20150509
  7. METOCLOPRAMIDE HCL [Concomitant]
     Active Substance: METOCLOPRAMIDE HYDROCHLORIDE
     Dosage: 30 MG, UNK
     Route: 048
     Dates: start: 20150305, end: 20150307
  8. VITAMEDIN                          /00176001/ [Concomitant]
     Dosage: 50 MG, UNK
     Route: 048
     Dates: start: 20150402, end: 20150404
  9. VITAMEDIN                          /00176001/ [Concomitant]
     Dosage: 50 MG, UNK
     Route: 048
     Dates: start: 20150514, end: 20150514
  10. G-LASTA [Suspect]
     Active Substance: PEGFILGRASTIM
     Dosage: 6 MG, 1X/3WEEKS
     Route: 058
     Dates: start: 20150508
  11. DEXRAZOXANE. [Concomitant]
     Active Substance: DEXRAZOXANE
     Dosage: 800 MG, UNK
     Route: 042
     Dates: start: 20150507, end: 20150507
  12. PALONOSETRON [Concomitant]
     Active Substance: PALONOSETRON
     Dosage: 0.25 MG, UNK
     Route: 042
     Dates: start: 20150305, end: 20150305
  13. DIMENHYDRINATE. [Concomitant]
     Active Substance: DIMENHYDRINATE
     Dosage: 150 MG, UNK
     Route: 048
     Dates: start: 20150416, end: 20150418
  14. METOCLOPRAMIDE HCL [Concomitant]
     Active Substance: METOCLOPRAMIDE HYDROCHLORIDE
     Dosage: 30 MG, UNK
     Route: 048
     Dates: start: 20150416, end: 20150418
  15. CEFOBACTAM [Concomitant]
     Dosage: 2 G, UNK
     Route: 048
     Dates: start: 20150402, end: 20150403
  16. CEFOBACTAM [Concomitant]
     Dosage: 2 G, UNK
     Route: 048
     Dates: start: 20150422, end: 20150424
  17. EUVAX B [Concomitant]
     Active Substance: HEPATITIS B VIRUS VACCINE
     Dosage: 1VIAL
     Route: 042
     Dates: start: 20150326
  18. FILGRASTIM [Concomitant]
     Active Substance: FILGRASTIM
     Dosage: 150 MUG, UNK
     Route: 058
     Dates: start: 20150402, end: 20150514
  19. G-LASTA [Suspect]
     Active Substance: PEGFILGRASTIM
     Indication: FEBRILE NEUTROPENIA
     Dosage: 6 MG, 1X/3WEEKS
     Route: 058
     Dates: start: 20150306
  20. G-LASTA [Suspect]
     Active Substance: PEGFILGRASTIM
     Dosage: 6 MG, 1X/3WEEKS
     Route: 058
     Dates: start: 20150327
  21. DOCETAXEL. [Concomitant]
     Active Substance: DOCETAXEL
     Dosage: 133 MG, UNK
     Route: 042
     Dates: start: 20150416, end: 20150416
  22. DOCETAXEL. [Concomitant]
     Active Substance: DOCETAXEL
     Dosage: 120 MG, UNK
     Route: 042
     Dates: start: 20150507, end: 20150507
  23. DOXORUBICIN [Concomitant]
     Active Substance: DOXORUBICIN
     Dosage: 89 MG, UNK
     Route: 042
     Dates: start: 20150305, end: 20150305
  24. DOXORUBICIN [Concomitant]
     Active Substance: DOXORUBICIN
     Dosage: 80 MG, UNK
     Route: 042
     Dates: start: 20150528, end: 20150528
  25. CYCLOPHOSPHAMIDE. [Concomitant]
     Active Substance: CYCLOPHOSPHAMIDE
     Dosage: 800 MG, UNK
     Route: 042
     Dates: start: 20150507, end: 20150507
  26. PALONOSETRON [Concomitant]
     Active Substance: PALONOSETRON
     Dosage: 0.25 MG, UNK
     Route: 042
     Dates: start: 20150326, end: 20150326
  27. RANITIDINE [Concomitant]
     Active Substance: RANITIDINE\RANITIDINE HYDROCHLORIDE
     Dosage: 300 MG, UNK
     Route: 048
     Dates: start: 20150305, end: 20150307
  28. ACTIFED                            /00200101/ [Concomitant]
     Dosage: 2T
     Route: 048
     Dates: start: 20150312, end: 20150315
  29. TRESTAN                            /00056201/ [Concomitant]
     Dosage: 2C
     Route: 048
     Dates: start: 20150402, end: 20150404
  30. TRESTAN                            /00056201/ [Concomitant]
     Dosage: 2C
     Route: 048
     Dates: start: 20150422, end: 20150424
  31. DARBEPOETIN ALFA [Concomitant]
     Active Substance: DARBEPOETIN ALFA
     Dosage: 452 MUG, UNK
     Route: 042
     Dates: start: 20150312, end: 20150514
  32. DOCETAXEL. [Concomitant]
     Active Substance: DOCETAXEL
     Dosage: 133 MG, UNK
     Route: 042
     Dates: start: 20150305, end: 20150305
  33. CYCLOPHOSPHAMIDE. [Concomitant]
     Active Substance: CYCLOPHOSPHAMIDE
     Dosage: 890 MG, UNK
     Route: 042
     Dates: start: 20150416, end: 20150416
  34. DEXRAZOXANE. [Concomitant]
     Active Substance: DEXRAZOXANE
     Dosage: 890 MG, UNK
     Route: 042
     Dates: start: 20150416, end: 20150416
  35. DEXAMETHASONE. [Concomitant]
     Active Substance: DEXAMETHASONE
     Dosage: 10 MG, UNK
     Route: 042
     Dates: start: 20150416, end: 20150416
  36. DEXAMETHASONE. [Concomitant]
     Active Substance: DEXAMETHASONE
     Dosage: 3 MG, UNK
     Route: 048
     Dates: start: 20150327, end: 20150328
  37. PALONOSETRON [Concomitant]
     Active Substance: PALONOSETRON
     Dosage: 0.25 MG, UNK
     Route: 042
     Dates: start: 20150507, end: 20150507
  38. APREPITANT. [Concomitant]
     Active Substance: APREPITANT
     Dosage: 80 MG, UNK
     Route: 048
     Dates: start: 20150306, end: 20150307
  39. APREPITANT. [Concomitant]
     Active Substance: APREPITANT
     Dosage: 80 MG, UNK
     Route: 048
     Dates: start: 20150327, end: 20150328
  40. APREPITANT. [Concomitant]
     Active Substance: APREPITANT
     Dosage: 80 MG, UNK
     Route: 048
     Dates: start: 20150417, end: 20150418
  41. APREPITANT. [Concomitant]
     Active Substance: APREPITANT
     Dosage: 125 MG, UNK
     Route: 048
     Dates: start: 20150507, end: 20150507
  42. RANITIDINE [Concomitant]
     Active Substance: RANITIDINE\RANITIDINE HYDROCHLORIDE
     Dosage: 300 MG, UNK
     Route: 048
     Dates: start: 20150416, end: 20150418
  43. TOBRAMYCIN. [Concomitant]
     Active Substance: TOBRAMYCIN
     Dosage: 200 MG, UNK
     Route: 042
     Dates: start: 20150402, end: 20150403
  44. TOBRAMYCIN. [Concomitant]
     Active Substance: TOBRAMYCIN
     Dosage: 200 MG, UNK
     Route: 042
     Dates: start: 20150422, end: 20150424
  45. TOBRAMYCIN. [Concomitant]
     Active Substance: TOBRAMYCIN
     Dosage: 200 MG, UNK
     Route: 042
     Dates: start: 20150514, end: 20150514
  46. MEGASTROL [Concomitant]
     Dosage: 20 ML, UNK
     Route: 048
     Dates: start: 20150402, end: 20150404
  47. MEGASTROL [Concomitant]
     Dosage: 20 ML, UNK
     Route: 048
     Dates: start: 20150422, end: 20150424
  48. TRESTAN                            /00056201/ [Concomitant]
     Dosage: UNK
     Route: 048
     Dates: start: 20150312, end: 20150315
  49. CHLORPHENAMINE [Concomitant]
     Active Substance: CHLORPHENIRAMINE MALEATE
     Dosage: 4 MG, UNK
     Route: 042
     Dates: start: 20150423, end: 20150423
  50. G-LASTA [Suspect]
     Active Substance: PEGFILGRASTIM
     Dosage: 6 MG, 1X/3WEEKS
     Route: 058
     Dates: start: 20150417
  51. DOCETAXEL. [Concomitant]
     Active Substance: DOCETAXEL
     Dosage: 120 MG, UNK
     Route: 042
     Dates: start: 20150528, end: 20150528
  52. DOXORUBICIN [Concomitant]
     Active Substance: DOXORUBICIN
     Dosage: 80 MG, UNK
     Route: 042
     Dates: start: 20150507, end: 20150507
  53. DEXRAZOXANE. [Concomitant]
     Active Substance: DEXRAZOXANE
     Dosage: 890 MG, UNK
     Route: 042
     Dates: start: 20150305, end: 20150305
  54. DEXAMETHASONE. [Concomitant]
     Active Substance: DEXAMETHASONE
     Dosage: 10 MG, UNK
     Route: 042
     Dates: start: 20150507, end: 20150507
  55. APREPITANT. [Concomitant]
     Active Substance: APREPITANT
     Dosage: 125 MG, UNK
     Route: 048
     Dates: start: 20150305, end: 20150305
  56. CEFOBACTAM [Concomitant]
     Dosage: 2 G, UNK
     Route: 048
     Dates: start: 20150312, end: 20150315
  57. CEFOBACTAM [Concomitant]
     Dosage: 2 G, UNK
     Route: 048
     Dates: start: 20150514, end: 20150514
  58. MEGASTROL [Concomitant]
     Dosage: 800 MG, UNK
     Route: 048
     Dates: start: 20150312, end: 20150315
  59. MEGASTROL [Concomitant]
     Dosage: 800 MG, UNK
     Route: 048
     Dates: start: 20150514, end: 20150514
  60. G-LASTA [Suspect]
     Active Substance: PEGFILGRASTIM
     Dosage: 6 MG, 1X/3WEEKS
     Route: 058
     Dates: start: 20150529
  61. DOXORUBICIN [Concomitant]
     Active Substance: DOXORUBICIN
     Dosage: 89 MG, UNK
     Route: 042
     Dates: start: 20150326, end: 20150326
  62. CYCLOPHOSPHAMIDE. [Concomitant]
     Active Substance: CYCLOPHOSPHAMIDE
     Dosage: 890 MG, UNK
     Route: 042
     Dates: start: 20150326, end: 20150326
  63. PALONOSETRON [Concomitant]
     Active Substance: PALONOSETRON
     Dosage: 0.25 MG, UNK
     Route: 042
     Dates: start: 20150416, end: 20150416
  64. APREPITANT. [Concomitant]
     Active Substance: APREPITANT
     Dosage: 125 MG, UNK
     Route: 048
     Dates: start: 20150326, end: 20150326
  65. DIMENHYDRINATE. [Concomitant]
     Active Substance: DIMENHYDRINATE
     Dosage: 150 MG, UNK
     Route: 048
     Dates: start: 20150305, end: 20150307
  66. DIMENHYDRINATE. [Concomitant]
     Active Substance: DIMENHYDRINATE
     Dosage: 150 MG, UNK
     Route: 048
     Dates: start: 20150326, end: 20150328
  67. DIMENHYDRINATE. [Concomitant]
     Active Substance: DIMENHYDRINATE
     Dosage: 150 MG, UNK
     Route: 048
     Dates: start: 20150507, end: 20150509
  68. RANITIDINE [Concomitant]
     Active Substance: RANITIDINE\RANITIDINE HYDROCHLORIDE
     Dosage: 300 MG, UNK
     Route: 048
     Dates: start: 20150507, end: 20150509
  69. DICLOFENAC [Concomitant]
     Active Substance: DICLOFENAC
     Dosage: 75 MG, UNK
     Route: 030
     Dates: start: 20150312, end: 20150312
  70. VITAMEDIN                          /00176001/ [Concomitant]
     Dosage: 50 MG, UNK
     Route: 048
     Dates: start: 20150312, end: 20150315
  71. VITAMEDIN                          /00176001/ [Concomitant]
     Dosage: 50 MG, UNK
     Route: 048
     Dates: start: 20150422, end: 20150424
  72. TRESTAN                            /00056201/ [Concomitant]
     Dosage: 2C
     Route: 048
     Dates: start: 20150514, end: 20150514
  73. DOCETAXEL. [Concomitant]
     Active Substance: DOCETAXEL
     Dosage: 133 MG, UNK
     Route: 042
     Dates: start: 20150326, end: 20150326
  74. DOXORUBICIN [Concomitant]
     Active Substance: DOXORUBICIN
     Dosage: 89 MG, UNK
     Route: 042
     Dates: start: 20150416, end: 20150416
  75. DEXAMETHASONE. [Concomitant]
     Active Substance: DEXAMETHASONE
     Dosage: 3 MG, UNK
     Route: 048
     Dates: start: 20150306, end: 20150307
  76. METOCLOPRAMIDE HCL [Concomitant]
     Active Substance: METOCLOPRAMIDE HYDROCHLORIDE
     Dosage: 30 MG, UNK
     Route: 048
     Dates: start: 20150326, end: 20150328
  77. METOCLOPRAMIDE HCL [Concomitant]
     Active Substance: METOCLOPRAMIDE HYDROCHLORIDE
     Dosage: 30 MG, UNK
     Route: 048
     Dates: start: 20150507, end: 20150509
  78. TOBRAMYCIN. [Concomitant]
     Active Substance: TOBRAMYCIN
     Dosage: 200 MG, UNK
     Route: 042
     Dates: start: 20150312, end: 20150315
  79. FLUCONAZOLE. [Concomitant]
     Active Substance: FLUCONAZOLE
     Dosage: 30 ML, UNK
     Route: 048
     Dates: start: 20150403, end: 20150403
  80. CYCLOPHOSPHAMIDE. [Concomitant]
     Active Substance: CYCLOPHOSPHAMIDE
     Dosage: 890 MG, UNK
     Route: 042
     Dates: start: 20150305, end: 20150305
  81. CYCLOPHOSPHAMIDE. [Concomitant]
     Active Substance: CYCLOPHOSPHAMIDE
     Dosage: 800 MG, UNK
     Route: 042
     Dates: start: 20150528, end: 20150528
  82. DEXAMETHASONE. [Concomitant]
     Active Substance: DEXAMETHASONE
     Dosage: 3 MG, UNK
     Route: 048
     Dates: start: 20150417, end: 20150418
  83. RANITIDINE [Concomitant]
     Active Substance: RANITIDINE\RANITIDINE HYDROCHLORIDE
     Dosage: 300 MG, UNK
     Route: 048
     Dates: start: 20150326, end: 20150328
  84. COUGH SYRUP [Concomitant]
     Active Substance: DEXTROMETHORPHAN HYDROBROMIDE\GUAIFENESIN
     Dosage: 60 ML, UNK
     Route: 048
     Dates: start: 20150312, end: 20150315
  85. CODEINE [Concomitant]
     Active Substance: CODEINE
     Dosage: 40 MG, UNK
     Route: 048
     Dates: start: 20150312, end: 20150315
  86. CODEINE [Concomitant]
     Active Substance: CODEINE
     Dosage: 60 MG, UNK
     Route: 048
     Dates: start: 20150403, end: 20150414
  87. NAPROXEN. [Concomitant]
     Active Substance: NAPROXEN
     Dosage: 1000 MG, UNK
     Route: 048
     Dates: start: 20150423, end: 20150423

REACTIONS (1)
  - Neutropenia [Recovered/Resolved]

NARRATIVE: CASE EVENT DATE: 20150604
